FAERS Safety Report 8418876-X (Version None)
Quarter: 2012Q2

REPORT INFORMATION
  Report Type: 
  Country: None (occurrence: None)
  Receive Date: 20120607
  Receipt Date: 20120531
  Transmission Date: 20120825
  Serious: Yes (Life-Threatening)
  Sender: FDA-Public Use
  Company Number: JP-CUBIST-2012S1000292

PATIENT
  Age: 83 Year
  Sex: Male

DRUGS (11)
  1. CUBICIN [Suspect]
     Indication: STAPHYLOCOCCAL INFECTION
     Route: 041
     Dates: start: 20120308, end: 20120317
  2. NOVOLIN R [Concomitant]
     Indication: PRODUCT USED FOR UNKNOWN INDICATION
     Route: 042
  3. VANCOMYCIN [Concomitant]
     Indication: STAPHYLOCOCCAL INFECTION
     Dosage: DAILY DOSAGE UNKNOWN DOSE UNIT:U
     Route: 051
     Dates: start: 20120224, end: 20120307
  4. ALL OTHER THERAPEUTIC PRODUCTS [Concomitant]
     Indication: PRODUCT USED FOR UNKNOWN INDICATION
     Dosage: DOSE UNIT:U
     Route: 042
  5. PREDNISOLONE ACETATE [Concomitant]
     Indication: PEMPHIGOID
     Route: 065
     Dates: start: 20120308, end: 20120314
  6. AMINO ACIDS/CARBOHYDRATES/MINERALS/VITAMINS, [Concomitant]
     Indication: PRODUCT USED FOR UNKNOWN INDICATION
     Route: 042
     Dates: start: 20120205, end: 20120321
  7. CUBICIN [Suspect]
     Indication: DECUBITUS ULCER
     Route: 041
     Dates: start: 20120308, end: 20120317
  8. ALL OTHER THERAPEUTIC PRODUCTS [Concomitant]
     Indication: STAPHYLOCOCCAL INFECTION
     Dosage: DOSE UNIT:U
     Route: 042
     Dates: start: 20120301, end: 20120307
  9. ALL OTHER THERAPEUTIC PRODUCTS [Concomitant]
     Indication: DECUBITUS ULCER
     Dosage: DOSE UNIT:U
     Route: 042
     Dates: start: 20120301, end: 20120307
  10. VANCOMYCIN [Concomitant]
     Indication: DECUBITUS ULCER
     Dosage: DAILY DOSAGE UNKNOWN DOSE UNIT:U
     Route: 051
     Dates: start: 20120224, end: 20120307
  11. LANSOPRAZOLE [Concomitant]
     Indication: PRODUCT USED FOR UNKNOWN INDICATION
     Dosage: DOSE UNIT:U
     Dates: start: 20111006

REACTIONS (1)
  - HEPATIC FUNCTION ABNORMAL [None]
